FAERS Safety Report 23199989 (Version 1)
Quarter: 2023Q4

REPORT INFORMATION
  Report Type: Other
  Country: CN (occurrence: None)
  Receive Date: 20231117
  Receipt Date: 20231117
  Transmission Date: 20240109
  Serious: Yes (Other)
  Sender: FDA-Public Use
  Company Number: CN-ROCHE-3459976

PATIENT
  Age: 40 Year
  Sex: Male

DRUGS (9)
  1. TOCILIZUMAB [Suspect]
     Active Substance: TOCILIZUMAB
     Indication: COVID-19
     Dosage: 640 MGX1
     Route: 065
  2. TOCILIZUMAB [Suspect]
     Active Substance: TOCILIZUMAB
     Dosage: 400XMG
     Route: 065
  3. TACROLIMUS [Concomitant]
     Active Substance: TACROLIMUS
  4. UNSPECIFIED INGREDIENT [Concomitant]
     Active Substance: UNSPECIFIED INGREDIENT
  5. UNSPECIFIED INGREDIENT [Concomitant]
     Active Substance: UNSPECIFIED INGREDIENT
  6. BARICITINIB [Concomitant]
     Active Substance: BARICITINIB
  7. MICAFUNGIN [Concomitant]
     Active Substance: MICAFUNGIN SODIUM
  8. GANCICLOVIR [Concomitant]
     Active Substance: GANCICLOVIR
  9. RO-0622 [Concomitant]
     Active Substance: RO-0622

REACTIONS (2)
  - Thrombocytopenia [Unknown]
  - Off label use [Unknown]
